FAERS Safety Report 10133572 (Version 1)
Quarter: 2014Q2

REPORT INFORMATION
  Report Type: Spontaneous
  Country: US (occurrence: US)
  Receive Date: 20140428
  Receipt Date: 20140428
  Transmission Date: 20141212
  Serious: Yes (Hospitalization, Other)
  Sender: FDA-Public Use
  Company Number: US-GILEAD-2014-0100658

PATIENT
  Sex: Female

DRUGS (4)
  1. LETAIRIS [Suspect]
     Indication: PRODUCT USED FOR UNKNOWN INDICATION
     Dosage: 5 MG, QD
     Route: 065
     Dates: start: 20140304
  2. REMODULIN [Concomitant]
  3. WARFARIN [Concomitant]
  4. RIOCIGUAT [Concomitant]

REACTIONS (4)
  - Sarcoidosis [Unknown]
  - Infusion [Unknown]
  - Dyspnoea [Unknown]
  - Oedema peripheral [Unknown]
